FAERS Safety Report 6109139-6 (Version None)
Quarter: 2009Q1

REPORT INFORMATION
  Report Type: 
  Country: None (occurrence: None)
  Receive Date: 20090306
  Receipt Date: 20090223
  Transmission Date: 20090719
  Serious: No
  Sender: FDA-Public Use
  Company Number: 2007-163018-NL

PATIENT
  Age: 43 Year
  Sex: Female

DRUGS (3)
  1. ETONOGESTREL (BATCH #: 873294/907266) [Suspect]
     Dosage: DF
     Dates: start: 20010101, end: 20040101
  2. ETONOGESTREL (BATCH #: 873294/907266) [Suspect]
     Dosage: DF
     Dates: start: 20040101, end: 20070101
  3. ETONOGESTREL (BATCH #: 873294/907266) [Suspect]
     Dosage: DF
     Dates: start: 20070613

REACTIONS (5)
  - BREAST CANCER STAGE I [None]
  - COMPLICATION OF DEVICE REMOVAL [None]
  - METRORRHAGIA [None]
  - OESTROGEN RECEPTOR ASSAY POSITIVE [None]
  - PROGESTERONE RECEPTOR ASSAY POSITIVE [None]
